FAERS Safety Report 8821445 (Version 1)
Quarter: 2012Q4

REPORT INFORMATION
  Report Type: 
  Country: DE (occurrence: FR)
  Receive Date: 20121002
  Receipt Date: 20121002
  Transmission Date: 20130627
  Serious: Yes (Other)
  Sender: FDA-Public Use
  Company Number: FR-ALEXION PHARMACEUTICALS INC.-A201201836

PATIENT
  Age: 27 Year

DRUGS (2)
  1. SOLIRIS 300MG [Suspect]
     Indication: HAEMOLYTIC URAEMIC SYNDROME
     Route: 042
  2. TACROLIMUS [Suspect]

REACTIONS (7)
  - Haemolytic uraemic syndrome [Unknown]
  - Condition aggravated [Unknown]
  - Immunosuppressant drug level increased [Recovering/Resolving]
  - Anaemia [Recovering/Resolving]
  - Thrombocytopenia [Unknown]
  - Thrombotic microangiopathy [Recovered/Resolved]
  - Haptoglobin decreased [Unknown]
